FAERS Safety Report 4940148-6 (Version None)
Quarter: 2006Q1

REPORT INFORMATION
  Report Type: 
  Country: None (occurrence: None)
  Receive Date: 20060307
  Receipt Date: 20060203
  Transmission Date: 20060701
  Serious: Yes (Other)
  Sender: FDA-Public Use
  Company Number: 2006BH002292

PATIENT
  Age: 55 Year
  Sex: Male
  Weight: 100 kg

DRUGS (14)
  1. GAMMAGARD LIQUID [Suspect]
     Indication: PERITONEAL DIALYSIS
     Dosage: 50 GR; IV
     Route: 042
     Dates: start: 20060117, end: 20060118
  2. RENAGEL [Concomitant]
  3. SEVELAMER [Concomitant]
  4. B+ VITAMIN [Concomitant]
  5. GLIPIZIDE [Concomitant]
  6. ISOSORBIDE [Concomitant]
  7. LIPITOR [Concomitant]
  8. CORAD [Concomitant]
  9. FOLIC ACID [Concomitant]
  10. PREVACID [Concomitant]
  11. ZOFRAN [Concomitant]
  12. NEURONTIN [Concomitant]
  13. FOSRENAL [Concomitant]
  14. IMMUNE GLOBULIN INTRAVENOUS (HUMAN) [Concomitant]

REACTIONS (3)
  - DIARRHOEA [None]
  - DRUG INEFFECTIVE [None]
  - INFLUENZA LIKE ILLNESS [None]
